FAERS Safety Report 11809356 (Version 3)
Quarter: 2016Q4

REPORT INFORMATION
  Report Type: Report from Study
  Country: DE (occurrence: DE)
  Receive Date: 20151207
  Receipt Date: 20161125
  Transmission Date: 20170206
  Serious: Yes (Hospitalization, Other)
  Sender: FDA-Public Use
  Company Number: DE-ROCHE-1672052

PATIENT
  Age: 82 Year
  Sex: Male
  Weight: 70 kg

DRUGS (6)
  1. RANIBIZUMAB [Suspect]
     Active Substance: RANIBIZUMAB
     Indication: SUBRETINAL FLUID
     Route: 031
  2. RANIBIZUMAB [Suspect]
     Active Substance: RANIBIZUMAB
     Indication: RETINAL CYST
     Dosage: 0.5 MG, UNK
     Route: 031
     Dates: start: 20150713, end: 20150713
  3. INFLANEFRAN [Concomitant]
     Indication: BACTERIAL INFECTION
     Dosage: 3 DF, UNK
     Route: 065
     Dates: start: 20150828
  4. DOXYCYCLINE. [Concomitant]
     Active Substance: DOXYCYCLINE
     Indication: BACTERIAL INFECTION
     Dosage: 200 MG, QD
     Route: 065
     Dates: start: 20150828
  5. RANIBIZUMAB [Suspect]
     Active Substance: RANIBIZUMAB
     Indication: NEOVASCULAR AGE-RELATED MACULAR DEGENERATION
     Dosage: DATE OF LAST DOSE PRIOR TO SAE: 13/JUL/2015
     Route: 031
     Dates: start: 20141204
  6. VIGAMOX [Concomitant]
     Active Substance: MOXIFLOXACIN HYDROCHLORIDE
     Indication: BACTERIAL INFECTION
     Dosage: 3 DF, UNK
     Route: 065
     Dates: start: 20150820, end: 20150828

REACTIONS (5)
  - Uveitis [Not Recovered/Not Resolved]
  - Visual acuity reduced [Unknown]
  - General physical health deterioration [Unknown]
  - Corneal decompensation [Unknown]
  - Hypopyon [Not Recovered/Not Resolved]

NARRATIVE: CASE EVENT DATE: 20150820
